FAERS Safety Report 4943511-2 (Version None)
Quarter: 2006Q1

REPORT INFORMATION
  Report Type: 
  Country: None (occurrence: None)
  Receive Date: 20060309
  Receipt Date: 20060228
  Transmission Date: 20060701
  Serious: Yes (Other)
  Sender: FDA-Public Use
  Company Number: 2006-02-1916

PATIENT
  Age: 59 Year
  Sex: Male

DRUGS (16)
  1. INTEGRILIN [Suspect]
     Indication: ANTICOAGULANT THERAPY
     Dosage: INTRAVENOUS
     Route: 042
     Dates: start: 20060126
  2. BLINDED STUDY CATEGORY - NON-SCHERING DRUGS [Suspect]
  3. HEPARIN [Suspect]
  4. ASPIRIN [Suspect]
  5. LIPITOR [Concomitant]
  6. MORPHINE [Concomitant]
  7. NITROGLYCERIN [Concomitant]
  8. CAPOTEN [Concomitant]
  9. PEPCID [Concomitant]
  10. COLACE [Concomitant]
  11. PREDNISONE [Concomitant]
  12. POTASSIUM SUPPLEMENT (NOS) [Concomitant]
  13. TOPROL-XL [Concomitant]
  14. BENADRYL [Concomitant]
  15. VERSED [Concomitant]
  16. FENTANYL [Concomitant]

REACTIONS (2)
  - HAEMATOMA [None]
  - HAEMOGLOBIN DECREASED [None]
